FAERS Safety Report 5356419-8 (Version None)
Quarter: 2007Q2

REPORT INFORMATION
  Report Type: 
  Country: None (occurrence: None)
  Receive Date: 20070530
  Receipt Date: 20061212
  Transmission Date: 20071010
  Serious: Yes (Other)
  Sender: FDA-Public Use
  Company Number: US200609003787

PATIENT
  Age: 35 Year
  Sex: Male
  Weight: 108.8 kg

DRUGS (1)
  1. ZYPREXA [Suspect]
     Dates: start: 19960101

REACTIONS (1)
  - PANCREATITIS [None]
